FAERS Safety Report 7303676-4 (Version None)
Quarter: 2011Q1

REPORT INFORMATION
  Report Type: 
  Country: None (occurrence: None)
  Receive Date: 20110221
  Receipt Date: 20110209
  Transmission Date: 20110831
  Serious: Yes (Other)
  Sender: FDA-Public Use
  Company Number: US-AMGEN-USASP2011008364

PATIENT
  Sex: Female

DRUGS (3)
  1. STELARA [Concomitant]
  2. ENBREL [Suspect]
     Indication: PSORIASIS
     Dosage: 50 MG, QWK
  3. METHOTREXATE [Concomitant]

REACTIONS (6)
  - VERTIGO [None]
  - DISORIENTATION [None]
  - THERAPEUTIC RESPONSE DECREASED [None]
  - DIZZINESS [None]
  - MEMORY IMPAIRMENT [None]
  - PSORIASIS [None]
